FAERS Safety Report 8095918-5 (Version None)
Quarter: 2012Q1

REPORT INFORMATION
  Report Type: 
  Country: None (occurrence: None)
  Receive Date: 20120129
  Receipt Date: 20111223
  Transmission Date: 20120608
  Serious: No
  Sender: FDA-Public Use
  Company Number: US-ABBOTT-11P-163-0886665-00

PATIENT
  Age: 26 Year
  Sex: Female

DRUGS (7)
  1. NEURONTIN [Concomitant]
     Indication: FIBROMYALGIA
     Route: 048
  2. OMEPRAZOLE [Concomitant]
     Indication: GASTROOESOPHAGEAL REFLUX DISEASE
     Dosage: AT BEDTIME
     Route: 048
  3. VICODIN [Concomitant]
     Indication: PAIN
     Route: 048
  4. HUMIRA [Suspect]
     Indication: CROHN'S DISEASE
     Dates: start: 20091001
  5. LIALDA [Concomitant]
     Indication: PROPHYLAXIS
  6. LIALDA [Concomitant]
     Indication: COLON CANCER
     Dosage: TWICE DAILY
     Route: 048
  7. LUNESTA [Concomitant]
     Indication: INSOMNIA
     Dosage: AT BEDTIME, AS NEEDED
     Route: 048

REACTIONS (2)
  - INJECTION SITE PAIN [None]
  - DEVICE MALFUNCTION [None]
